FAERS Safety Report 5149281-X (Version None)
Quarter: 2006Q4

REPORT INFORMATION
  Report Type: 
  Country: None (occurrence: None)
  Receive Date: 20061113
  Receipt Date: 20051025
  Transmission Date: 20070319
  Serious: No
  Sender: FDA-Public Use
  Company Number: 423376

PATIENT
  Sex: Female

DRUGS (5)
  1. COREG [Suspect]
     Indication: HYPERTENSION
     Dosage: 3.125MG PER DAY
     Route: 048
  2. WELLBUTRIN XL [Suspect]
     Indication: DEPRESSION
     Dosage: 300MG PER DAY
     Route: 048
     Dates: start: 20051011
  3. ABILIFY [Concomitant]
  4. LOTREL [Concomitant]
  5. TRAZODONE HCL [Concomitant]

REACTIONS (3)
  - BLOOD PRESSURE DECREASED [None]
  - DYSPNOEA [None]
  - WEIGHT INCREASED [None]
